FAERS Safety Report 16755026 (Version 1)
Quarter: 2019Q3

REPORT INFORMATION
  Report Type: Spontaneous
  Country: US (occurrence: US)
  Receive Date: 20190711
  Receipt Date: 20190711
  Transmission Date: 20191005
  Serious: No
  Sender: FDA-Public Use
  Company Number: None

PATIENT
  Age: 18 Year
  Sex: Male
  Weight: 65.32 kg

DRUGS (1)
  1. METHYLIDATE GENERIC ER [Suspect]
     Active Substance: METHYLPHENIDATE
     Indication: ATTENTION DEFICIT/HYPERACTIVITY DISORDER
     Dosage: ?          OTHER FREQUENCY:2 Q AM;?
     Route: 048

REACTIONS (6)
  - Impulsive behaviour [None]
  - Distractibility [None]
  - Psychomotor hyperactivity [None]
  - Intellectual disability [None]
  - Drug ineffective [None]
  - Disruptive mood dysregulation disorder [None]

NARRATIVE: CASE EVENT DATE: 20190627
